FAERS Safety Report 20164532 (Version 2)
Quarter: 2022Q1

REPORT INFORMATION
  Report Type: Report from Study
  Country: MX (occurrence: MX)
  Receive Date: 20211209
  Receipt Date: 20220106
  Transmission Date: 20220423
  Serious: Yes (Hospitalization, Disabling)
  Sender: FDA-Public Use
  Company Number: MX-NOVARTISPH-NVSC2021MX132772

PATIENT
  Age: 38 Year
  Sex: Female
  Weight: 59 kg

DRUGS (2)
  1. GILENYA [Suspect]
     Active Substance: FINGOLIMOD HYDROCHLORIDE
     Indication: Multiple sclerosis
     Dosage: 0.5 MG, QD
     Route: 047
  2. GILENYA [Suspect]
     Active Substance: FINGOLIMOD HYDROCHLORIDE
     Dosage: 0.5 MG, QD
     Route: 048

REACTIONS (11)
  - Balance disorder [Unknown]
  - Visual impairment [Unknown]
  - Vertigo [Not Recovered/Not Resolved]
  - Muscular weakness [Unknown]
  - Multiple sclerosis relapse [Recovered/Resolved with Sequelae]
  - Dizziness [Not Recovered/Not Resolved]
  - Speech disorder [Not Recovered/Not Resolved]
  - Fall [Unknown]
  - Gait disturbance [Unknown]
  - Feeling abnormal [Unknown]
  - Incorrect route of product administration [Unknown]

NARRATIVE: CASE EVENT DATE: 20210503
